FAERS Safety Report 14305122 (Version 1)
Quarter: 2017Q4

REPORT INFORMATION
  Report Type: Report from Study
  Country: JP (occurrence: JP)
  Receive Date: 20171219
  Receipt Date: 20171219
  Transmission Date: 20180321
  Serious: Yes (Hospitalization)
  Sender: FDA-Public Use
  Company Number: JP-OTSUKA-006043

PATIENT
  Age: 30 Year
  Sex: Female

DRUGS (13)
  1. ARIPIPRAZOLE. [Suspect]
     Active Substance: ARIPIPRAZOLE
     Dosage: 30 MG, QD
     Route: 048
     Dates: start: 20081225, end: 20090126
  2. SILECE [Concomitant]
     Active Substance: FLUNITRAZEPAM
     Dosage: 4 MG, QD
     Route: 048
     Dates: start: 20090126
  3. ARIPIPRAZOLE. [Suspect]
     Active Substance: ARIPIPRAZOLE
     Dosage: 24 MG, QD
     Route: 048
     Dates: start: 20081120, end: 20081224
  4. LINTON [Concomitant]
     Active Substance: HALOPERIDOL
     Dosage: 3 MG, QD
     Route: 048
     Dates: start: 20081211, end: 20081225
  5. LINTON [Concomitant]
     Active Substance: HALOPERIDOL
     Dosage: 1.5 MG, QD
     Route: 048
     Dates: start: 20081226, end: 20090114
  6. AKINETON [Concomitant]
     Active Substance: BIPERIDEN HYDROCHLORIDE
     Dosage: 2 MG, QD
     Route: 048
     Dates: start: 20081211, end: 20081224
  7. SILECE [Concomitant]
     Active Substance: FLUNITRAZEPAM
     Dosage: 2 MG, QD
     Route: 048
     Dates: end: 20090125
  8. FLUNITRAZEPAM [Concomitant]
     Active Substance: FLUNITRAZEPAM
     Dosage: DOSE INCREASED TO 6MG/DAY.  FORM = TABS
  9. ARIPIPRAZOLE. [Suspect]
     Active Substance: ARIPIPRAZOLE
     Indication: SCHIZOPHRENIA
     Dosage: 12 MG, QD
     Route: 048
     Dates: start: 20081027, end: 20081119
  10. AKINETON [Concomitant]
     Active Substance: BIPERIDEN HYDROCHLORIDE
     Dosage: 1 MG, QD
     Route: 048
     Dates: start: 20081225
  11. MEILAX [Concomitant]
     Active Substance: ETHYL LOFLAZEPATE
     Dosage: 2 MG, QD
     Route: 048
     Dates: start: 20070604
  12. LINTON [Concomitant]
     Active Substance: HALOPERIDOL
     Indication: SCHIZOPHRENIA
     Dosage: 4.5 MG, QD
     Route: 048
     Dates: end: 20081210
  13. AKINETON [Concomitant]
     Active Substance: BIPERIDEN HYDROCHLORIDE
     Dosage: 3 MG, QD
     Route: 048
     Dates: end: 20081210

REACTIONS (3)
  - Delusion [Not Recovered/Not Resolved]
  - Hallucination [Not Recovered/Not Resolved]
  - Drug ineffective [Unknown]

NARRATIVE: CASE EVENT DATE: 20090126
